FAERS Safety Report 13891732 (Version 2)
Quarter: 2017Q3

REPORT INFORMATION
  Report Type: Spontaneous
  Country: JP (occurrence: JP)
  Receive Date: 20170822
  Receipt Date: 20170825
  Transmission Date: 20171127
  Serious: Yes (Other)
  Sender: FDA-Public Use
  Company Number: JP-PFIZER INC-2017357166

PATIENT
  Sex: Female
  Weight: 45 kg

DRUGS (2)
  1. SOLU-MEDROL [Suspect]
     Active Substance: METHYLPREDNISOLONE SODIUM SUCCINATE
     Dosage: UNK
     Dates: start: 20170209
  2. PREDNISOLONE. [Suspect]
     Active Substance: PREDNISOLONE
     Dosage: UNK (FOR 1 WEEK)
     Route: 048
     Dates: start: 20170209

REACTIONS (12)
  - Gait inability [Unknown]
  - Arthralgia [Unknown]
  - Dizziness [Unknown]
  - Abdominal pain [Unknown]
  - Pallor [Unknown]
  - Weight decreased [Unknown]
  - Urticaria [Recovered/Resolved]
  - Osteitis [Unknown]
  - Medication error [Unknown]
  - Pain in extremity [Unknown]
  - Depression [Unknown]
  - Paraesthesia [Unknown]

NARRATIVE: CASE EVENT DATE: 2017
